FAERS Safety Report 5695061-6 (Version None)
Quarter: 2008Q2

REPORT INFORMATION
  Report Type: 
  Country: None (occurrence: None)
  Receive Date: 20080404
  Receipt Date: 20080325
  Transmission Date: 20081010
  Serious: Yes (Hospitalization, Other)
  Sender: FDA-Public Use
  Company Number: US-PFIZER INC-2008014045

PATIENT
  Sex: Female
  Weight: 52.2 kg

DRUGS (6)
  1. DILANTIN [Interacting]
     Indication: EPILEPSY
  2. LYRICA [Suspect]
  3. ALL OTHER THERAPEUTIC PRODUCTS [Suspect]
     Indication: CONVULSION
  4. ALL OTHER THERAPEUTIC PRODUCTS [Interacting]
  5. SYNTHROID [Concomitant]
  6. PRIMIDONE [Concomitant]

REACTIONS (9)
  - ANTICONVULSANT DRUG LEVEL INCREASED [None]
  - DRUG INTERACTION [None]
  - DRUG TOXICITY [None]
  - EPILEPSY [None]
  - HYPERSOMNIA [None]
  - INSOMNIA [None]
  - MALAISE [None]
  - TEMPORAL LOBE EPILEPSY [None]
  - THYROID FUNCTION TEST ABNORMAL [None]
